FAERS Safety Report 15757936 (Version 1)
Quarter: 2018Q4

REPORT INFORMATION
  Report Type: Spontaneous
  Country: ES (occurrence: ES)
  Receive Date: 20181225
  Receipt Date: 20181225
  Transmission Date: 20190205
  Serious: Yes (Hospitalization)
  Sender: FDA-Public Use
  Company Number: ES-ACCORD-097556

PATIENT
  Age: 83 Year
  Sex: Male

DRUGS (4)
  1. BISOPROLOL AUROVITAS [Concomitant]
     Indication: ATRIAL FIBRILLATION
     Dosage: 1-0-0
     Route: 048
  2. SINTROM [Interacting]
     Active Substance: ACENOCOUMAROL
     Indication: ATRIAL FIBRILLATION
     Dosage: ACCORDING TO GUIDELINE
     Route: 048
  3. CLOPIDOGREL [Suspect]
     Active Substance: CLOPIDOGREL BISULFATE
     Indication: ATRIAL FIBRILLATION
     Dosage: 0-1-0
     Route: 048
     Dates: start: 20140920
  4. ATORVASTATIN ABEX [Concomitant]
     Indication: HYPERCHOLESTEROLAEMIA
     Route: 048

REACTIONS (3)
  - Hypocoagulable state [Recovered/Resolved]
  - Drug interaction [Unknown]
  - Duodenal ulcer haemorrhage [Recovered/Resolved]

NARRATIVE: CASE EVENT DATE: 20170920
